FAERS Safety Report 8564268-2 (Version None)
Quarter: 2012Q3

REPORT INFORMATION
  Report Type: 
  Country: None (occurrence: None)
  Receive Date: 20120727
  Receipt Date: 20120727
  Transmission Date: 20120928
  Serious: Yes (Other)
  Sender: FDA-Public Use
  Company Number: None

PATIENT
  Sex: Male

DRUGS (1)
  1. HUMIRA [Suspect]
     Dosage: 40 MG EVERY OTHER WEEK, SQ
     Dates: start: 20110913, end: 20120725

REACTIONS (5)
  - DYSPNOEA [None]
  - PALPITATIONS [None]
  - PAIN [None]
  - ARTHRALGIA [None]
  - HEADACHE [None]
